FAERS Safety Report 9608394 (Version 1)
Quarter: 2013Q4

REPORT INFORMATION
  Report Type: Spontaneous
  Country: AN (occurrence: None)
  Receive Date: 20131007
  Receipt Date: 20131007
  Transmission Date: 20140711
  Serious: Yes (Other)
  Sender: FDA-Public Use
  Company Number: AUR-APL-2013-08157

PATIENT
  Age: 63 Year
  Sex: Female

DRUGS (9)
  1. OLANZAPINE [Suspect]
     Indication: MAJOR DEPRESSION
     Dates: start: 20130904, end: 20130905
  2. LORAZEPAM [Suspect]
     Indication: ANXIETY
     Dates: start: 201309
  3. VENLAFAXINE HCL (VENLAFAXINE HYDROCHLORIDE) [Suspect]
     Indication: DEPRESSION
     Dates: start: 201305
  4. NORTRILEN [Suspect]
     Indication: DEPRESSION
     Dates: start: 201305
  5. INSULIN ASPART [Concomitant]
  6. HYDROCHLOROTHIAZIDE/IRBESARTAN HYDROCHLORIDE [Concomitant]
  7. OXAZEPAM [Concomitant]
  8. MIRTAZAPINE [Concomitant]
  9. RISPERIDONE [Concomitant]

REACTIONS (6)
  - Orthostatic hypotension [None]
  - Syncope [None]
  - Pulse absent [None]
  - Loss of consciousness [None]
  - Somnolence [None]
  - Speech disorder [None]
